FAERS Safety Report 23758534 (Version 1)
Quarter: 2024Q2

REPORT INFORMATION
  Report Type: Spontaneous
  Country: BR (occurrence: BR)
  Receive Date: 20240418
  Receipt Date: 20240418
  Transmission Date: 20240715
  Serious: No
  Sender: FDA-Public Use
  Company Number: BR-WT-2024-AMR-029732

PATIENT
  Sex: Male

DRUGS (1)
  1. AVODART [Suspect]
     Active Substance: DUTASTERIDE
     Dosage: 0.5 MG
     Route: 065

REACTIONS (4)
  - Confusional state [Unknown]
  - Sluggishness [Unknown]
  - Malaise [Unknown]
  - Depression [Unknown]
